FAERS Safety Report 25376164 (Version 1)
Quarter: 2025Q2

REPORT INFORMATION
  Report Type: Spontaneous
  Country: US (occurrence: US)
  Receive Date: 20250529
  Receipt Date: 20250529
  Transmission Date: 20250717
  Serious: No
  Sender: TAKEDA
  Company Number: US-TAKEDA-2025TUS047756

PATIENT
  Age: 26 Year
  Sex: Female
  Weight: 51 kg

DRUGS (17)
  1. VYVANSE [Suspect]
     Active Substance: LISDEXAMFETAMINE DIMESYLATE
     Indication: Attention deficit hyperactivity disorder
  2. LUMRYZ [Suspect]
     Active Substance: SODIUM OXYBATE
     Indication: Narcolepsy
     Dosage: 4.5 GRAM, QD
     Dates: start: 20250413, end: 20250419
  3. LUMRYZ [Suspect]
     Active Substance: SODIUM OXYBATE
     Dosage: 6 GRAM, QD
     Dates: start: 20250420, end: 20250423
  4. ZINC [Concomitant]
     Active Substance: ZINC
  5. TYROSINE [Concomitant]
     Active Substance: TYROSINE
  6. CANNABIDIOL [Concomitant]
     Active Substance: CANNABIDIOL
  7. CANNABIS SATIVA SUBSP. INDICA TOP [Concomitant]
     Active Substance: CANNABIS SATIVA SUBSP. INDICA TOP
  8. VITAMIN B1 [Concomitant]
     Active Substance: THIAMINE HYDROCHLORIDE
  9. MAGNESIUM GLYCINATE [Concomitant]
     Active Substance: MAGNESIUM GLYCINATE
  10. Omega-3 fish oil +vitamin d [Concomitant]
  11. DIETARY SUPPLEMENT [Concomitant]
     Active Substance: DIETARY SUPPLEMENT
  12. JUNEL FE 24 [Concomitant]
     Active Substance: ETHINYL ESTRADIOL\NORETHINDRONE ACETATE
  13. TRETINOIN [Concomitant]
     Active Substance: TRETINOIN
  14. SERTRALINE HYDROCHLORIDE [Concomitant]
     Active Substance: SERTRALINE HYDROCHLORIDE
  15. BUPROPION HYDROCHLORIDE [Concomitant]
     Active Substance: BUPROPION HYDROCHLORIDE
  16. HYDROXYZINE HYDROCHLORIDE [Concomitant]
     Active Substance: HYDROXYZINE HYDROCHLORIDE
  17. PROPRANOLOL HYDROCHLORIDE [Concomitant]
     Active Substance: PROPRANOLOL HYDROCHLORIDE

REACTIONS (23)
  - Feeling abnormal [Unknown]
  - Periorbital swelling [Unknown]
  - Performance status decreased [Unknown]
  - Abnormal sleep-related event [Unknown]
  - Body temperature abnormal [Unknown]
  - Snoring [Unknown]
  - Poor quality sleep [Unknown]
  - Confusional state [Unknown]
  - Wrong technique in product usage process [Unknown]
  - Product dose omission in error [Unknown]
  - Pain in jaw [Unknown]
  - Product dose omission issue [Unknown]
  - Apathy [Unknown]
  - Drug ineffective [Unknown]
  - Memory impairment [Unknown]
  - Abdominal discomfort [Unknown]
  - Insomnia [Unknown]
  - Middle insomnia [Unknown]
  - Palpitations [Unknown]
  - Dyspnoea [Unknown]
  - Nausea [Unknown]
  - Headache [Unknown]
  - Somnolence [Unknown]

NARRATIVE: CASE EVENT DATE: 20250401
